FAERS Safety Report 13668050 (Version 1)
Quarter: 2017Q2

REPORT INFORMATION
  Report Type: Spontaneous
  Country: US (occurrence: US)
  Receive Date: 20170620
  Receipt Date: 20170620
  Transmission Date: 20170830
  Serious: No
  Sender: FDA-Public Use
  Company Number: US-PFIZER INC-2017263547

PATIENT
  Age: 57 Year
  Sex: Male

DRUGS (1)
  1. SUTENT [Suspect]
     Active Substance: SUNITINIB MALATE
     Indication: THYROID CANCER
     Dosage: 37.5 MG, DAILY
     Route: 048

REACTIONS (4)
  - Diarrhoea [Unknown]
  - Insomnia [Unknown]
  - Hypertension [Unknown]
  - Product use in unapproved indication [Unknown]
